FAERS Safety Report 9478845 (Version 2)
Quarter: 2013Q3

REPORT INFORMATION
  Report Type: Spontaneous
  Country: FR (occurrence: FR)
  Receive Date: 20130827
  Receipt Date: 20130910
  Transmission Date: 20140515
  Serious: Yes (Hospitalization)
  Sender: FDA-Public Use
  Company Number: PHHY2013FR092039

PATIENT
  Age: 58 Year
  Sex: Male

DRUGS (16)
  1. AMOXICILLIN SODIUM+POTASSIUM CLAVULANATE SANDOZ [Suspect]
     Indication: INFECTION
     Route: 042
     Dates: start: 20130705, end: 20130715
  2. AMOXICILLINE/ACIDE CLAVULANIQUE MYLAN [Suspect]
     Indication: INFECTION
     Route: 048
     Dates: start: 20130716, end: 20130724
  3. TRIATEC [Concomitant]
     Indication: HYPERTENSION
     Dosage: 2.5 MG, QD
     Route: 048
     Dates: end: 20130708
  4. METRONIDAZOLE B BRAUN [Concomitant]
     Indication: PRODUCT USED FOR UNKNOWN INDICATION
     Dosage: 500 MG, Q8H
     Route: 042
     Dates: start: 20130701, end: 20130708
  5. TYGACIL [Concomitant]
     Dosage: 500 MG, BID
     Route: 042
     Dates: start: 20130705, end: 20130717
  6. NEORAL [Concomitant]
     Dosage: 100 MG, BID
     Route: 065
     Dates: start: 20130618
  7. CELLCEPT [Concomitant]
     Dosage: 1 G, BID
     Route: 065
  8. SOLUPRED [Concomitant]
     Dosage: 12.5 MG, QD
     Route: 065
  9. ROVALCYTE [Concomitant]
     Dosage: 450 MG, BID
     Route: 065
  10. INEXIUM//ESOMEPRAZOLE MAGNESIUM [Concomitant]
     Dosage: 20 MG, QD
     Route: 065
  11. CALCIDOSE VITAMINE D [Concomitant]
     Dosage: 2 DF, QD
     Route: 065
  12. NOVORAPID [Concomitant]
     Route: 065
  13. LANTUS [Concomitant]
     Route: 065
  14. ACUPAN [Concomitant]
     Route: 065
  15. APROVEL [Concomitant]
     Dosage: 150 MG, QD
     Route: 065
  16. MOVICOL [Concomitant]
     Dosage: 1 DF, QD
     Route: 065

REACTIONS (1)
  - Hepatocellular injury [Recovered/Resolved]
